FAERS Safety Report 9923954 (Version 1)
Quarter: 2014Q1

REPORT INFORMATION
  Report Type: Spontaneous
  Country: AU (occurrence: AU)
  Receive Date: 20140225
  Receipt Date: 20140225
  Transmission Date: 20141002
  Serious: Yes (Other)
  Sender: FDA-Public Use
  Company Number: PHHY2014AU019940

PATIENT
  Age: 37 Year
  Sex: Female

DRUGS (3)
  1. CEFTRIAXONE [Suspect]
     Indication: ESCHERICHIA BACTERAEMIA
     Dosage: 1 G, 17 MG/KG
     Route: 042
  2. AMOXICILLIN+CLAVULANATE [Interacting]
     Indication: CELLULITIS
     Route: 048
  3. IMMUNOSUPPRESSANTS [Concomitant]

REACTIONS (2)
  - Escherichia bacteraemia [Recovered/Resolved]
  - Treatment failure [Unknown]
